FAERS Safety Report 6551290-0 (Version None)
Quarter: 2010Q1

REPORT INFORMATION
  Report Type: 
  Country: None (occurrence: None)
  Receive Date: 20100126
  Receipt Date: 20100117
  Transmission Date: 20100710
  Serious: Yes (Other)
  Sender: FDA-Public Use
  Company Number: US-RB-001104-10

PATIENT
  Age: 72 Year
  Sex: Male

DRUGS (2)
  1. MUCINEX DM [Suspect]
     Indication: COUGH
     Route: 048
     Dates: start: 20100101
  2. MUCINEX DM [Suspect]
     Route: 048
     Dates: start: 20100101

REACTIONS (1)
  - HAEMOPTYSIS [None]
